FAERS Safety Report 4399772-4 (Version None)
Quarter: 2004Q3

REPORT INFORMATION
  Report Type: 
  Country: None (occurrence: None)
  Receive Date: 20040714
  Receipt Date: 20040702
  Transmission Date: 20050211
  Serious: Yes (Death)
  Sender: FDA-Public Use
  Company Number: 04P-229-0259498-00

PATIENT
  Age: 32 Year
  Sex: Female

DRUGS (7)
  1. VALPROATE SODIUM [Suspect]
     Dosage: 600 MG, CYCLIC
  2. TEMOZOLOMIDE [Suspect]
     Indication: GLIOBLASTOMA
     Dosage: 300 MG, CYCLIC
  3. DEXAMETHASONE [Concomitant]
  4. ESOMEPRAZOLE [Concomitant]
  5. GRANISETRON [Concomitant]
  6. GABAPENTIN [Concomitant]
  7. GABAPENTIN [Concomitant]

REACTIONS (2)
  - PAIN [None]
  - THERAPEUTIC RESPONSE INCREASED [None]
